FAERS Safety Report 4283226-X (Version None)
Quarter: 2004Q1

REPORT INFORMATION
  Report Type: 
  Country: None (occurrence: None)
  Receive Date: 20040129
  Receipt Date: 20040119
  Transmission Date: 20041129
  Serious: Yes (Death)
  Sender: FDA-Public Use
  Company Number: CA-JNJFOC-20040104744

PATIENT

DRUGS (1)
  1. RISPERDAL [Suspect]

REACTIONS (1)
  - RENAL FAILURE [None]
